FAERS Safety Report 14869878 (Version 3)
Quarter: 2018Q3

REPORT INFORMATION
  Report Type: Report from Study
  Country: CO (occurrence: CO)
  Receive Date: 20180509
  Receipt Date: 20180911
  Transmission Date: 20181010
  Serious: Yes (Life-Threatening, Other)
  Sender: FDA-Public Use
  Company Number: CO-ROCHE-2119048

PATIENT
  Age: 7 Year
  Sex: Female
  Weight: 22 kg

DRUGS (8)
  1. XOLAIR [Suspect]
     Active Substance: OMALIZUMAB
     Route: 058
     Dates: start: 201805, end: 201805
  2. SALMETEROL [Concomitant]
     Active Substance: SALMETEROL
     Indication: PRODUCT USED FOR UNKNOWN INDICATION
     Route: 065
  3. XOLAIR [Suspect]
     Active Substance: OMALIZUMAB
     Route: 058
     Dates: start: 20180420
  4. FLUTICASONE FUROATE [Concomitant]
     Active Substance: FLUTICASONE FUROATE
     Indication: PRODUCT USED FOR UNKNOWN INDICATION
     Dosage: FUROATE DE FLUTICASONE
     Route: 045
  5. LORATADINE. [Concomitant]
     Active Substance: LORATADINE
     Indication: INFLUENZA
     Dosage: 5 MG, UNK
     Route: 048
  6. XOLAIR [Suspect]
     Active Substance: OMALIZUMAB
     Route: 058
     Dates: start: 20180407
  7. XOLAIR [Suspect]
     Active Substance: OMALIZUMAB
     Route: 058
     Dates: start: 20180626, end: 20180627
  8. XOLAIR [Suspect]
     Active Substance: OMALIZUMAB
     Indication: ASTHMA
     Route: 058
     Dates: start: 20180307

REACTIONS (20)
  - Acne [Not Recovered/Not Resolved]
  - Rash [Unknown]
  - Glossitis [Recovered/Resolved]
  - Pruritus generalised [Unknown]
  - Diarrhoea [Recovered/Resolved]
  - Erythema [Unknown]
  - Blepharitis [Unknown]
  - Cheilitis [Unknown]
  - Vomiting [Recovered/Resolved]
  - Muscle spasms [Recovered/Resolved]
  - Hypersensitivity [Recovered/Resolved]
  - Urticaria chronic [Recovered/Resolved]
  - Swelling face [Recovered/Resolved]
  - Peripheral swelling [Unknown]
  - Generalised oedema [Unknown]
  - Abdominal pain upper [Recovered/Resolved]
  - Swollen tongue [Unknown]
  - Joint swelling [Unknown]
  - Urticaria [Recovered/Resolved]
  - Inflammation [Recovered/Resolved]

NARRATIVE: CASE EVENT DATE: 20180407
